FAERS Safety Report 6201075-X (Version None)
Quarter: 2009Q2

REPORT INFORMATION
  Report Type: 
  Country: None (occurrence: None)
  Receive Date: 20090526
  Receipt Date: 20090518
  Transmission Date: 20091009
  Serious: Yes (Other)
  Sender: FDA-Public Use
  Company Number: RU-BRISTOL-MYERS SQUIBB COMPANY-14631550

PATIENT
  Age: 30 Year
  Sex: Male

DRUGS (4)
  1. REYATAZ [Suspect]
     Indication: HIV INFECTION
     Route: 048
     Dates: start: 20090401, end: 20090101
  2. RITONAVIR [Suspect]
  3. ADEMETIONINE [Concomitant]
     Indication: HEPATITIS C
  4. DEXTROSE 5% [Concomitant]
     Indication: HEPATITIS C

REACTIONS (1)
  - ABDOMINAL DISTENSION [None]
